FAERS Safety Report 19955922 (Version 1)
Quarter: 2021Q4

REPORT INFORMATION
  Report Type: Spontaneous
  Country: PT (occurrence: PT)
  Receive Date: 20211014
  Receipt Date: 20211014
  Transmission Date: 20220303
  Serious: Yes (Other)
  Sender: FDA-Public Use
  Company Number: PT-FRESENIUS KABI-FK202111045

PATIENT
  Age: 41 Year
  Sex: Female

DRUGS (2)
  1. ROPIVACAINE [Suspect]
     Active Substance: ROPIVACAINE
     Indication: Epidural anaesthesia
     Dosage: 0.2 PERCENT ROPIVACAINE BOLUS (10ML)
     Route: 008
  2. ROPIVACAINE [Suspect]
     Active Substance: ROPIVACAINE
     Indication: Hysterectomy
     Dosage: 0.16 PERCENT ROPIVACAINE EPIDURAL PERFUSION (5.2ML/H)
     Route: 008

REACTIONS (4)
  - Hemiparesis [Not Recovered/Not Resolved]
  - Allodynia [Unknown]
  - Paraesthesia [Not Recovered/Not Resolved]
  - Hypoaesthesia [Not Recovered/Not Resolved]
